FAERS Safety Report 20381594 (Version 2)
Quarter: 2022Q4

REPORT INFORMATION
  Report Type: Spontaneous
  Country: US (occurrence: US)
  Receive Date: 20220127
  Receipt Date: 20221108
  Transmission Date: 20230112
  Serious: Yes (Other)
  Sender: FDA-Public Use
  Company Number: US-GILEAD-2022-0566436

PATIENT
  Age: 59 Year
  Sex: Male
  Weight: 96.599 kg

DRUGS (15)
  1. TRUVADA [Suspect]
     Active Substance: EMTRICITABINE\TENOFOVIR DISOPROXIL FUMARATE
     Indication: HIV infection
     Dosage: UNK
     Route: 048
     Dates: start: 2006
  2. TRUVADA [Suspect]
     Active Substance: EMTRICITABINE\TENOFOVIR DISOPROXIL FUMARATE
     Dosage: UNK
     Route: 048
     Dates: start: 2005, end: 201701
  3. DESCOVY [Concomitant]
     Active Substance: EMTRICITABINE\TENOFOVIR ALAFENAMIDE FUMARATE
  4. KALETRA [Concomitant]
     Active Substance: LOPINAVIR\RITONAVIR
  5. CRIXIVAN [Concomitant]
     Active Substance: INDINAVIR SULFATE
  6. NORVIR [Concomitant]
     Active Substance: RITONAVIR
  7. LEXIVA [Concomitant]
     Active Substance: FOSAMPRENAVIR CALCIUM
  8. RETROVIR [Concomitant]
     Active Substance: ZIDOVUDINE
  9. SUSTIVA [Concomitant]
     Active Substance: EFAVIRENZ
  10. TIVICAY [Concomitant]
     Active Substance: DOLUTEGRAVIR SODIUM
  11. VIDEX [Concomitant]
     Active Substance: DIDANOSINE
  12. ZIAGEN [Concomitant]
     Active Substance: ABACAVIR SULFATE
  13. ZERIT [Concomitant]
     Active Substance: STAVUDINE
  14. CRESTOR [Concomitant]
     Active Substance: ROSUVASTATIN CALCIUM
  15. LISINOPRIL [Concomitant]
     Active Substance: LISINOPRIL

REACTIONS (7)
  - Osteoporosis [Not Recovered/Not Resolved]
  - Bone demineralisation [Unknown]
  - Emotional distress [Not Recovered/Not Resolved]
  - Anhedonia [Not Recovered/Not Resolved]
  - Anxiety [Not Recovered/Not Resolved]
  - Pain [Not Recovered/Not Resolved]
  - Back pain [Unknown]

NARRATIVE: CASE EVENT DATE: 20140801
